FAERS Safety Report 5600528-2 (Version None)
Quarter: 2008Q1

REPORT INFORMATION
  Report Type: 
  Country: None (occurrence: None)
  Receive Date: 20080123
  Receipt Date: 20080116
  Transmission Date: 20080703
  Serious: Yes (Other)
  Sender: FDA-Public Use
  Company Number: IL-ROXANE LABORATORIES, INC-2008-DE-00301GD

PATIENT

DRUGS (10)
  1. MORPHINE [Suspect]
     Indication: POSTOPERATIVE ANALGESIA
     Dosage: TOTAL CONSUMPTION IN THE PATIENT'S GROUP: 8.8 +/- 5.1 MG
     Route: 042
  2. PERCOCET-5 [Suspect]
     Indication: POSTOPERATIVE ANALGESIA
     Dosage: 20 MG OXYCODONE, 1300 MG ACETAMINOPHEN
     Route: 048
  3. MIDAZOLAM HCL [Concomitant]
     Indication: ANAESTHETIC PREMEDICATION
     Dosage: 0.1 MG/KG
     Route: 048
  4. MIDAZOLAM HCL [Concomitant]
     Indication: INDUCTION OF ANAESTHESIA
     Dosage: 0.02 - 0.04 MG/KG
     Route: 042
  5. MIDAZOLAM HCL [Concomitant]
     Indication: MAINTENANCE OF ANAESTHESIA
  6. MIDAZOLAM HCL [Concomitant]
     Indication: SEDATIVE THERAPY
     Route: 042
  7. FENTANYL [Concomitant]
     Indication: INDUCTION OF ANAESTHESIA
     Dosage: 10 - 15 MCG/KG
     Route: 042
  8. FENTANYL [Concomitant]
     Indication: MAINTENANCE OF ANAESTHESIA
  9. ISOFLURANE [Concomitant]
     Indication: MAINTENANCE OF ANAESTHESIA
  10. PANCURONIUM [Concomitant]
     Indication: ENDOTRACHEAL INTUBATION

REACTIONS (1)
  - CEREBROVASCULAR ACCIDENT [None]
